FAERS Safety Report 6531467-0 (Version None)
Quarter: 2010Q1

REPORT INFORMATION
  Report Type: 
  Country: None (occurrence: None)
  Receive Date: 20100108
  Receipt Date: 20100104
  Transmission Date: 20100710
  Serious: Yes (Life-Threatening, Hospitalization)
  Sender: FDA-Public Use
  Company Number: FR-ASTRAZENECA-2009SE18577

PATIENT
  Age: 39 Year
  Sex: Female

DRUGS (7)
  1. NEXIUM [Suspect]
     Indication: POLYARTHRITIS
     Route: 048
     Dates: start: 20090825, end: 20090909
  2. SALAZOPYRINE [Suspect]
     Indication: POLYARTHRITIS
     Route: 048
     Dates: start: 20090825, end: 20090907
  3. VOLTAREN [Suspect]
     Indication: POLYARTHRITIS
     Route: 048
     Dates: start: 20090825, end: 20090909
  4. METHOTREXATE [Suspect]
     Dosage: 4 TABLETS A DAY
     Route: 048
     Dates: start: 20090909
  5. RIFINHA [Suspect]
     Route: 048
     Dates: start: 20090909, end: 20090914
  6. ACUPAN [Suspect]
     Indication: POLYARTHRITIS
     Route: 048
     Dates: start: 20090825, end: 20090909
  7. ENBREL [Concomitant]
     Indication: RHEUMATOID ARTHRITIS

REACTIONS (4)
  - DRUG RASH WITH EOSINOPHILIA AND SYSTEMIC SYMPTOMS [None]
  - LYMPHADENOPATHY [None]
  - PYREXIA [None]
  - RASH MACULO-PAPULAR [None]
